FAERS Safety Report 19258657 (Version 1)
Quarter: 2021Q2

REPORT INFORMATION
  Report Type: Spontaneous
  Country: US (occurrence: US)
  Receive Date: 20210514
  Receipt Date: 20210514
  Transmission Date: 20210717
  Serious: Yes (Hospitalization)
  Sender: FDA-Public Use
  Company Number: US-ASTRAZENECA-2021A423145

PATIENT
  Age: 892 Month
  Sex: Female
  Weight: 89.8 kg

DRUGS (4)
  1. SYMBICORT [Suspect]
     Active Substance: BUDESONIDE\FORMOTEROL FUMARATE DIHYDRATE
     Indication: WHEEZING
     Dosage: 160/4.5 2 PUFFS DAILY
     Route: 055
  2. SNIGULAIR [Concomitant]
     Indication: ASTHMA
  3. SYMBICORT [Suspect]
     Active Substance: BUDESONIDE\FORMOTEROL FUMARATE DIHYDRATE
     Indication: ASTHMA
     Dosage: 160/4.5 2 PUFFS DAILY
     Route: 055
  4. GAMAGUARD [Concomitant]

REACTIONS (4)
  - Dyspnoea [Unknown]
  - COVID-19 [Unknown]
  - Inability to afford medication [Unknown]
  - Product dose omission issue [Unknown]

NARRATIVE: CASE EVENT DATE: 202101
